FAERS Safety Report 20800554 (Version 1)
Quarter: 2022Q2

REPORT INFORMATION
  Report Type: Report from Study
  Country: US (occurrence: None)
  Receive Date: 20220509
  Receipt Date: 20220509
  Transmission Date: 20220721
  Serious: Yes (Death, Other)
  Sender: FDA-Public Use
  Company Number: US-ROCHE-2230812

PATIENT
  Age: 52 Year
  Sex: Female
  Weight: 65 kg

DRUGS (6)
  1. ATEZOLIZUMAB [Suspect]
     Active Substance: ATEZOLIZUMAB
     Indication: Biliary neoplasm
     Dosage: OVER 30-60 MINUTES ON DAYS 1 AND 15?SUBSEQUENT DOSE ON 20/JUN/2018
     Route: 042
     Dates: start: 20180417
  2. ATEZOLIZUMAB [Suspect]
     Active Substance: ATEZOLIZUMAB
     Dosage: LAST TREATMENT ON 30/JUL/2018
     Route: 042
     Dates: start: 20180716
  3. ATEZOLIZUMAB [Suspect]
     Active Substance: ATEZOLIZUMAB
     Dosage: ON DAYS 1 AND 15
     Route: 011
     Dates: start: 20180320
  4. COBIMETINIB [Suspect]
     Active Substance: COBIMETINIB
     Indication: Biliary neoplasm
     Dosage: SUBSEQUENT DOSE ON 20/JUN/2018
     Route: 048
     Dates: start: 20180417
  5. COBIMETINIB [Suspect]
     Active Substance: COBIMETINIB
     Dosage: LAST TREATMENT ON 30/JUL/2018
     Route: 048
     Dates: start: 20180716
  6. COBIMETINIB [Suspect]
     Active Substance: COBIMETINIB
     Dosage: ON DAYS 1 - 21
     Route: 048
     Dates: start: 20180320

REACTIONS (3)
  - Death [Fatal]
  - Hyperkalaemia [Unknown]
  - Disease progression [Fatal]
